FAERS Safety Report 9066091 (Version 1)
Quarter: 2013Q1

REPORT INFORMATION
  Report Type: Spontaneous
  Country: BR (occurrence: BR)
  Receive Date: 20130201
  Receipt Date: 20130201
  Transmission Date: 20140127
  Serious: Yes (Other)
  Sender: FDA-Public Use
  Company Number: BR-AMGEN-BRASP2013006604

PATIENT
  Age: 59 Year
  Sex: Male
  Weight: 74 kg

DRUGS (6)
  1. ENBREL [Suspect]
     Indication: RHEUMATOID ARTHRITIS
     Dosage: 50 MG, WEEKLY
     Route: 058
     Dates: start: 201112
  2. CLOPIDOGREL [Concomitant]
     Indication: MYOCARDIAL INFARCTION
     Dosage: UNKNOWN
     Dates: start: 2010
  3. ASPIRINA PREVENT [Concomitant]
     Indication: MYOCARDIAL INFARCTION
     Dosage: UNKNOWN
     Dates: start: 2010
  4. PRELONE                            /00016201/ [Concomitant]
     Indication: MYOCARDIAL INFARCTION
     Dosage: UNKNOWN
     Dates: start: 2010
  5. METFORMIN [Concomitant]
     Indication: DIABETES MELLITUS
     Dosage: UNKNOWN
     Dates: start: 2010
  6. HARPADOL [Concomitant]
     Indication: RHEUMATOID ARTHRITIS
     Dosage: UNKNOWN
     Dates: start: 2010

REACTIONS (2)
  - Emphysema [Unknown]
  - Fibrosis [Unknown]
